FAERS Safety Report 15742849 (Version 5)
Quarter: 2019Q1

REPORT INFORMATION
  Report Type: Spontaneous
  Country: CZ (occurrence: CZ)
  Receive Date: 20181219
  Receipt Date: 20190326
  Transmission Date: 20190417
  Serious: Yes (Life-Threatening, Hospitalization, Other)
  Sender: FDA-Public Use
  Company Number: CZ-BAXTER-2018BAX030133

PATIENT
  Age: 75 Year
  Sex: Female

DRUGS (7)
  1. NOVALGIN (METAMIZOLE SODIUM) [Suspect]
     Active Substance: METAMIZOLE SODIUM
     Indication: LAPAROSCOPIC SURGERY
     Dosage: 5ML - 2,5G
     Route: 042
     Dates: start: 20181126, end: 20181126
  2. NOVALGIN (METAMIZOLE SODIUM) [Suspect]
     Active Substance: METAMIZOLE SODIUM
     Dosage: 5ML - 2,5G
     Route: 042
     Dates: start: 20181126, end: 20181126
  3. PROPOFOL MCT/LCT FRESENIUS [Suspect]
     Active Substance: PROPOFOL
     Indication: LAPAROSCOPIC SURGERY
     Dosage: DOSAGE FORM: EMULSION.
     Route: 042
     Dates: start: 20181126, end: 20181126
  4. SEVORANE [Suspect]
     Active Substance: SEVOFLURANE
     Indication: LAPAROSCOPIC SURGERY
     Dosage: DOSAGE FORM: RESPIRATORY INHALATION SOLUTION.
     Route: 055
     Dates: start: 20181126, end: 20181126
  5. SUFENTA [Suspect]
     Active Substance: SUFENTANIL CITRATE
     Indication: LAPAROSCOPIC SURGERY
     Dosage: 10 MICROGRAM A 2ML
     Route: 042
     Dates: start: 20181126, end: 20181126
  6. FYZIOLOGICK? ROZTOK VIAFLO [Suspect]
     Active Substance: SODIUM CHLORIDE
     Indication: LAPAROSCOPIC SURGERY
     Dosage: DOSAGE FORM: SOLUTION.
     Route: 042
     Dates: start: 20181126, end: 20181126
  7. SEVORANE [Suspect]
     Active Substance: SEVOFLURANE
     Indication: SURGERY
     Dosage: 100% 1X250M
     Route: 055
     Dates: start: 20181126

REACTIONS (11)
  - Device issue [Unknown]
  - Suspected product contamination [Unknown]
  - Hypotension [Recovering/Resolving]
  - Vomiting [Recovering/Resolving]
  - Oxygen saturation decreased [Recovering/Resolving]
  - Hepatorenal failure [Recovering/Resolving]
  - Suspected product quality issue [Unknown]
  - Diarrhoea [Recovering/Resolving]
  - Nausea [Recovering/Resolving]
  - Septic shock [Recovering/Resolving]
  - Bacteraemia [Not Recovered/Not Resolved]

NARRATIVE: CASE EVENT DATE: 20181126
